FAERS Safety Report 9919945 (Version 1)
Quarter: 2014Q1

REPORT INFORMATION
  Report Type: Spontaneous
  Country: US (occurrence: US)
  Receive Date: 20140224
  Receipt Date: 20140224
  Transmission Date: 20141002
  Serious: Yes (Other)
  Sender: FDA-Public Use
  Company Number: US-BAYER-2014-027586

PATIENT
  Age: 62 Year
  Sex: Male

DRUGS (2)
  1. MAGNEVIST [Suspect]
     Indication: SCAN BRAIN
     Dosage: 20 ML, ONCE
     Dates: start: 20140217
  2. MAGNEVIST [Suspect]
     Indication: CONVULSION

REACTIONS (2)
  - Paraesthesia [Recovered/Resolved]
  - Unresponsive to stimuli [Recovered/Resolved]
